FAERS Safety Report 4705440-9 (Version None)
Quarter: 2005Q3

REPORT INFORMATION
  Report Type: 
  Country: None (occurrence: None)
  Receive Date: 20050701
  Receipt Date: 20050621
  Transmission Date: 20060218
  Serious: Yes (Life-Threatening, Other)
  Sender: FDA-Public Use
  Company Number: TR-GLAXOSMITHKLINE-B0385783A

PATIENT
  Age: 37 Year
  Sex: Female
  Weight: 88 kg

DRUGS (2)
  1. RELIFEX [Suspect]
     Indication: OSTEOARTHRITIS
     Dosage: 500MG TWICE PER DAY
     Route: 048
     Dates: start: 20050620, end: 20050621
  2. CHLORZOXAZONE + PARACETAMOL [Concomitant]
     Dates: start: 20050620

REACTIONS (9)
  - BRONCHOSPASM [None]
  - DIZZINESS [None]
  - DYSPNOEA [None]
  - ERYTHEMA [None]
  - FACE OEDEMA [None]
  - HYPERSENSITIVITY [None]
  - OEDEMA PERIPHERAL [None]
  - PRURITUS [None]
  - URTICARIA [None]
